FAERS Safety Report 15920769 (Version 2)
Quarter: 2020Q3

REPORT INFORMATION
  Report Type: Spontaneous
  Country: US (occurrence: US)
  Receive Date: 20190205
  Receipt Date: 20200831
  Transmission Date: 20201102
  Serious: Yes (Other)
  Sender: FDA-Public Use
  Company Number: US-GILEAD-2019-0387796

PATIENT
  Age: 53 Year
  Sex: Female
  Weight: 74.83 kg

DRUGS (59)
  1. PROCARDIA [Concomitant]
     Active Substance: NIFEDIPINE
  2. SODIUM BICARBONATE. [Concomitant]
     Active Substance: SODIUM BICARBONATE
  3. AMLODIPINE [Concomitant]
     Active Substance: AMLODIPINE BESYLATE
  4. REYATAZ [Concomitant]
     Active Substance: ATAZANAVIR SULFATE
  5. ABACAVIR. [Concomitant]
     Active Substance: ABACAVIR
  6. RANITIDINE. [Concomitant]
     Active Substance: RANITIDINE
  7. AZIDOTHYMIDINE [Concomitant]
     Active Substance: ZIDOVUDINE
  8. CEFALEXIN [Concomitant]
     Active Substance: CEPHALEXIN
  9. ALREX [ALPRAZOLAM] [Concomitant]
  10. OXYCODONE [Concomitant]
     Active Substance: OXYCODONE
  11. ATRIPLA [Suspect]
     Active Substance: EFAVIRENZ\EMTRICITABINE\TENOFOVIR DISOPROXIL FUMARATE
     Indication: HIV INFECTION
     Dosage: UNK
     Route: 048
     Dates: start: 2013, end: 2017
  12. LEVEMIR [Concomitant]
     Active Substance: INSULIN DETEMIR
  13. MEPRON [METAMIZOLE SODIUM] [Concomitant]
     Active Substance: METAMIZOLE SODIUM
  14. LISINOPRIL. [Concomitant]
     Active Substance: LISINOPRIL
  15. RISPERIDONE. [Concomitant]
     Active Substance: RISPERIDONE
  16. VERAPAMIL [Concomitant]
     Active Substance: VERAPAMIL HYDROCHLORIDE
  17. VENLAFAXINE [Concomitant]
     Active Substance: VENLAFAXINE HYDROCHLORIDE
  18. PROAIR HFA [Concomitant]
     Active Substance: ALBUTEROL SULFATE
  19. COLCRYS [Concomitant]
     Active Substance: COLCHICINE
  20. VIREAD [Suspect]
     Active Substance: TENOFOVIR DISOPROXIL FUMARATE
     Dosage: UNK
     Route: 048
     Dates: start: 2013, end: 2017
  21. STRIBILD [Suspect]
     Active Substance: COBICISTAT\ELVITEGRAVIR\EMTRICITABINE\TENOFOVIR DISOPROXIL FUMARATE
     Indication: HIV INFECTION
     Dosage: UNK
     Route: 048
     Dates: start: 2013, end: 2017
  22. ZESTORETIC [Concomitant]
     Active Substance: HYDROCHLOROTHIAZIDE\LISINOPRIL
  23. LOSARTAN. [Concomitant]
     Active Substance: LOSARTAN
  24. CRIXIVAN [Concomitant]
     Active Substance: INDINAVIR SULFATE
  25. EPIVIR [Concomitant]
     Active Substance: LAMIVUDINE
  26. AMBIEN [Concomitant]
     Active Substance: ZOLPIDEM TARTRATE
  27. CARVEDILOL. [Concomitant]
     Active Substance: CARVEDILOL
  28. VIREAD [Suspect]
     Active Substance: TENOFOVIR DISOPROXIL FUMARATE
     Indication: HIV INFECTION
     Dosage: UNK
     Route: 048
     Dates: start: 200206, end: 201706
  29. EPZICOM [Concomitant]
     Active Substance: ABACAVIR SULFATE\LAMIVUDINE
  30. NORVIR [Concomitant]
     Active Substance: RITONAVIR
  31. TIVICAY [Concomitant]
     Active Substance: DOLUTEGRAVIR SODIUM
  32. ZERIT [Concomitant]
     Active Substance: STAVUDINE
  33. SAQUINAVIR [Concomitant]
     Active Substance: SAQUINAVIR
  34. PREZISTA [Concomitant]
     Active Substance: DARUNAVIR ETHANOLATE
  35. SUCRALFATE. [Concomitant]
     Active Substance: SUCRALFATE
  36. DETROL [Concomitant]
     Active Substance: TOLTERODINE TARTRATE
  37. CELEXA [Concomitant]
     Active Substance: CITALOPRAM HYDROBROMIDE
  38. ISENTRESS [Concomitant]
     Active Substance: RALTEGRAVIR POTASSIUM
  39. KALETRA [Concomitant]
     Active Substance: LOPINAVIR\RITONAVIR
  40. VIRACEPT [Concomitant]
     Active Substance: NELFINAVIR MESYLATE
  41. GENTAMICIN. [Concomitant]
     Active Substance: GENTAMICIN
  42. FLUCONAZOLE. [Concomitant]
     Active Substance: FLUCONAZOLE
  43. HYDROCHLOROTHIAZIDE. [Concomitant]
     Active Substance: HYDROCHLOROTHIAZIDE
  44. ALLOPURINOL. [Concomitant]
     Active Substance: ALLOPURINOL
  45. LEXAPRO [Concomitant]
     Active Substance: ESCITALOPRAM OXALATE
  46. TRUVADA [Suspect]
     Active Substance: EMTRICITABINE\TENOFOVIR DISOPROXIL FUMARATE
     Dosage: UNK
     Route: 048
     Dates: end: 2018
  47. TRADJENTA [Concomitant]
     Active Substance: LINAGLIPTIN
  48. INVIRASE [Concomitant]
     Active Substance: SAQUINAVIR MESYLATE
  49. ZIAGEN [Concomitant]
     Active Substance: ABACAVIR SULFATE
  50. NEVIRAPINE. [Concomitant]
     Active Substance: NEVIRAPINE
  51. ASPARIN [Concomitant]
     Active Substance: ASPIRIN DL-LYSINE
  52. CLONIDINE. [Concomitant]
     Active Substance: CLONIDINE
  53. ZOLPIDEM [Concomitant]
     Active Substance: ZOLPIDEM TARTRATE
  54. TRUVADA [Suspect]
     Active Substance: EMTRICITABINE\TENOFOVIR DISOPROXIL FUMARATE
     Indication: HIV INFECTION
     Dosage: UNK
     Route: 048
     Dates: start: 2013, end: 2017
  55. FUROSEMIDE. [Concomitant]
     Active Substance: FUROSEMIDE
  56. APTIVUS [Concomitant]
     Active Substance: TIPRANAVIR
  57. COMBIVIR [Concomitant]
     Active Substance: LAMIVUDINE\ZIDOVUDINE
  58. METOPROLOL. [Concomitant]
     Active Substance: METOPROLOL
  59. ATORVASTATIN [Concomitant]
     Active Substance: ATORVASTATIN

REACTIONS (16)
  - Renal disorder [Unknown]
  - Renal failure [Not Recovered/Not Resolved]
  - Mobility decreased [Unknown]
  - Loss of personal independence in daily activities [Unknown]
  - Quality of life decreased [Unknown]
  - Anxiety [Unknown]
  - Depression [Recovered/Resolved]
  - End stage renal disease [Not Recovered/Not Resolved]
  - Pain [Recovered/Resolved]
  - Economic problem [Not Recovered/Not Resolved]
  - Emotional distress [Recovered/Resolved]
  - Anxiety [Not Recovered/Not Resolved]
  - Bone density decreased [Not Recovered/Not Resolved]
  - Asthenia [Unknown]
  - Anhedonia [Not Recovered/Not Resolved]
  - Emotional disorder [Unknown]

NARRATIVE: CASE EVENT DATE: 1993
